FAERS Safety Report 25537529 (Version 1)
Quarter: 2025Q3

REPORT INFORMATION
  Report Type: Report from Study
  Country: US (occurrence: US)
  Receive Date: 20250710
  Receipt Date: 20250710
  Transmission Date: 20251021
  Serious: Yes (Other)
  Sender: ABBVIE
  Company Number: US-ABBVIE-6362324

PATIENT
  Age: 62 Year
  Sex: Male

DRUGS (1)
  1. RINVOQ [Suspect]
     Active Substance: UPADACITINIB
     Indication: Ankylosing spondylitis
     Dosage: STRENGTH:15 MG
     Route: 048
     Dates: start: 20250416

REACTIONS (3)
  - Spinal operation [Unknown]
  - Mobility decreased [Unknown]
  - Joint range of motion decreased [Unknown]

NARRATIVE: CASE EVENT DATE: 20250101
